FAERS Safety Report 17016236 (Version 1)
Quarter: 2019Q4

REPORT INFORMATION
  Report Type: Report from Study
  Country: US (occurrence: US)
  Receive Date: 20191111
  Receipt Date: 20191111
  Transmission Date: 20200122
  Serious: Yes (Other)
  Sender: FDA-Public Use
  Company Number: US-JNJFOC-20191102869

PATIENT

DRUGS (3)
  1. CANAGLIFLOZIN [Suspect]
     Active Substance: CANAGLIFLOZIN
     Indication: TYPE 2 DIABETES MELLITUS
     Route: 048
  2. SEMAGLUTIDE [Suspect]
     Active Substance: SEMAGLUTIDE
     Indication: TYPE 2 DIABETES MELLITUS
     Route: 058
  3. METFORMIN [Concomitant]
     Active Substance: METFORMIN HYDROCHLORIDE
     Indication: TYPE 2 DIABETES MELLITUS

REACTIONS (19)
  - Vomiting [Unknown]
  - Urinary tract infection [Unknown]
  - Medication error [Unknown]
  - Dehydration [Unknown]
  - Neoplasm malignant [Unknown]
  - Perineal infection [Unknown]
  - Genital infection [Unknown]
  - Nervous system disorder [Unknown]
  - Diabetic retinopathy [Unknown]
  - Wound [Unknown]
  - Constipation [Unknown]
  - Dyspepsia [Unknown]
  - Nausea [Unknown]
  - Gastrointestinal disorder [Unknown]
  - Overdose [Unknown]
  - Infection [Unknown]
  - Diarrhoea [Unknown]
  - Angiopathy [Unknown]
  - Hypoglycaemia [Unknown]
